FAERS Safety Report 16809625 (Version 1)
Quarter: 2019Q3

REPORT INFORMATION
  Report Type: Spontaneous
  Country: US (occurrence: US)
  Receive Date: 20190916
  Receipt Date: 20190916
  Transmission Date: 20191005
  Serious: Yes (Other)
  Sender: FDA-Public Use
  Company Number: US-AMGEN-USASP2019148288

PATIENT
  Age: 75 Year
  Sex: Female

DRUGS (9)
  1. PRIMIDONE. [Suspect]
     Active Substance: PRIMIDONE
     Indication: TREMOR
     Dosage: 50 MILLIGRAM
     Route: 048
  2. OMEPRAZOLE. [Concomitant]
     Active Substance: OMEPRAZOLE
     Indication: GASTROOESOPHAGEAL REFLUX DISEASE
  3. HYDROXYUREA. [Suspect]
     Active Substance: HYDROXYUREA
     Indication: RED BLOOD CELL COUNT ABNORMAL
     Dosage: 500 MILLIGRAM 2 CAPSULES ONCE A DAY
     Route: 048
  4. OMEPRAZOLE. [Concomitant]
     Active Substance: OMEPRAZOLE
     Indication: HIATUS HERNIA
     Dosage: UNK
  5. ENBREL [Suspect]
     Active Substance: ETANERCEPT
     Indication: PSORIATIC ARTHROPATHY
     Dosage: 50 MILLIGRAM, 2 TIMES/WK
     Route: 065
  6. CELEBREX [Suspect]
     Active Substance: CELECOXIB
     Indication: ARTHRITIS
     Dosage: 200 MILLIGRAM, BID
     Route: 048
  7. MORPHINE [Concomitant]
     Active Substance: MORPHINE
     Dosage: 300 MILLIGRAM, BID
     Dates: start: 1997
  8. ENBREL [Suspect]
     Active Substance: ETANERCEPT
     Indication: PSORIASIS
     Dosage: 50 MILLIGRAM, 2 TIMES/WK
     Route: 065
  9. HYDROXYUREA. [Suspect]
     Active Substance: HYDROXYUREA
     Indication: WHITE BLOOD CELL COUNT ABNORMAL

REACTIONS (10)
  - Spinal operation [Unknown]
  - Shoulder arthroplasty [Unknown]
  - Red blood cell count abnormal [Unknown]
  - Off label use [Unknown]
  - Knee operation [Unknown]
  - Malaise [Unknown]
  - White blood cell count abnormal [Unknown]
  - Carpal tunnel syndrome [Unknown]
  - Tremor [Not Recovered/Not Resolved]
  - Blood urine present [Unknown]
